FAERS Safety Report 4655901-6 (Version None)
Quarter: 2005Q2

REPORT INFORMATION
  Report Type: 
  Country: None (occurrence: None)
  Receive Date: 20050506
  Receipt Date: 20050506
  Transmission Date: 20051028
  Serious: No
  Sender: FDA-Public Use
  Company Number: None

PATIENT
  Age: 44 Year
  Sex: Male
  Weight: 79.8331 kg

DRUGS (2)
  1. PEGASYS [Suspect]
     Indication: HEPATITIS C
     Dosage: 180MCG  QWEEK SUBCUTANEOUS
     Route: 058
     Dates: start: 20050114, end: 20050505
  2. RIBAVIRIN [Suspect]
     Indication: HEPATITIS C
     Dosage: 3 TABS BID ORAL
     Route: 048
     Dates: start: 20050114, end: 20050505

REACTIONS (2)
  - BLOOD TRIGLYCERIDES INCREASED [None]
  - HIGH DENSITY LIPOPROTEIN DECREASED [None]
